FAERS Safety Report 21697009 (Version 2)
Quarter: 2024Q2

REPORT INFORMATION
  Report Type: Spontaneous
  Country: IN (occurrence: IN)
  Receive Date: 20221208
  Receipt Date: 20240403
  Transmission Date: 20240716
  Serious: Yes (Other)
  Sender: FDA-Public Use
  Company Number: IN-ALLERGAN-1922235US

PATIENT
  Age: 42 Year
  Sex: Female

DRUGS (2)
  1. ACITRETIN [Suspect]
     Active Substance: ACITRETIN
     Indication: Psoriasis
     Dosage: DOSAGE TEXT: 25 MG
     Route: 048
  2. PREDNISOLONE [Concomitant]
     Active Substance: PREDNISOLONE
     Indication: Pustular psoriasis
     Dosage: DOSAGE TEXT: 10 MG, QD
     Route: 065

REACTIONS (4)
  - Leukocytosis [Unknown]
  - Differentiation syndrome [Recovered/Resolved]
  - Respiratory alkalosis [Unknown]
  - Metabolic acidosis [Unknown]
